FAERS Safety Report 4745322-X (Version None)
Quarter: 2005Q3

REPORT INFORMATION
  Report Type: 
  Country: None (occurrence: None)
  Receive Date: 20050812
  Receipt Date: 20050804
  Transmission Date: 20060218
  Serious: Yes (Hospitalization)
  Sender: FDA-Public Use
  Company Number: TCI2005A03173

PATIENT
  Age: 72 Year
  Sex: Male

DRUGS (14)
  1. ACTOS [Suspect]
     Indication: DIABETES MELLITUS
     Dosage: 15 MG (15 MG, 1 IN 1 D), PER ORAL
     Route: 048
     Dates: start: 20050404, end: 20050516
  2. CODEINE PHOSPHATE (CODEINE PHOSPHATE) [Suspect]
     Dosage: SEE IMAGE
     Route: 048
     Dates: start: 20050406, end: 20050419
  3. CODEINE PHOSPHATE (CODEINE PHOSPHATE) [Suspect]
     Dosage: SEE IMAGE
     Route: 048
     Dates: start: 20050420, end: 20050516
  4. SAIBOKU-TOU (SAIBOKU-TO) [Suspect]
     Dosage: 7.5 MG (2.5 MG, 3 IN 1 D), PER ORAL
     Route: 048
     Dates: start: 20050420, end: 20050516
  5. RABEPRAZOLE SODIUM [Suspect]
     Dosage: 20 MG (20 MG, 1 IN 1 D), PER ORAL
     Route: 048
     Dates: start: 20050210, end: 20050516
  6. MEILAX (ETHYL LOFLAZEPATE) [Concomitant]
     Dosage: PER ORAL
     Route: 048
     Dates: start: 20050420, end: 20050516
  7. KIPRES (MONTELUKAST SODIUM) [Suspect]
     Dosage: PER ORAL
     Route: 048
     Dates: start: 20050324, end: 20050516
  8. ATELEC (CILNIDIPINE) [Concomitant]
  9. FLIVAS (NAFTOPIDIL) [Concomitant]
  10. METHYCOBAL (MECOBLALAMIN) [Concomitant]
  11. NORVASC [Concomitant]
  12. PRORENAL (LIMAPROST) [Concomitant]
  13. GASMOTIN (MOSAPRIDE CITRATE) [Concomitant]
  14. BANKUMONDOUTOU (BANKUMONDOUTO) [Concomitant]

REACTIONS (15)
  - ASTHENIA [None]
  - BLOOD LACTATE DEHYDROGENASE INCREASED [None]
  - CHEST X-RAY ABNORMAL [None]
  - COMPLEMENT FACTOR C4 DECREASED [None]
  - DIZZINESS [None]
  - EOSINOPHILIC PNEUMONIA [None]
  - FALL [None]
  - HYPOXIA [None]
  - INTERSTITIAL LUNG DISEASE [None]
  - LUMBAR SPINAL STENOSIS [None]
  - LUNG DISORDER [None]
  - LYMPHOCYTE STIMULATION TEST POSITIVE [None]
  - PNEUMONIA BACTERIAL [None]
  - PNEUMONITIS [None]
  - VOCAL CORD PARALYSIS [None]
